FAERS Safety Report 9476207 (Version 1)
Quarter: 2013Q3

REPORT INFORMATION
  Report Type: Spontaneous
  Country: US (occurrence: None)
  Receive Date: 20130823
  Receipt Date: 20130823
  Transmission Date: 20140515
  Serious: No
  Sender: FDA-Public Use
  Company Number: None

PATIENT
  Age: 83 Year
  Sex: Male

DRUGS (1)
  1. LEVAQUIN [Suspect]
     Indication: PNEUMONIA
     Route: 048
     Dates: start: 20100603

REACTIONS (8)
  - Brain injury [None]
  - Device malfunction [None]
  - Feeling abnormal [None]
  - Skin discolouration [None]
  - Catheterisation cardiac [None]
  - Loss of consciousness [None]
  - Pulse absent [None]
  - Coronary arterial stent insertion [None]
